FAERS Safety Report 14705175 (Version 3)
Quarter: 2018Q2

REPORT INFORMATION
  Report Type: Report from Study
  Country: AU (occurrence: AU)
  Receive Date: 20180402
  Receipt Date: 20180528
  Transmission Date: 20180711
  Serious: Yes (Other)
  Sender: FDA-Public Use
  Company Number: AU-REGENERON PHARMACEUTICALS, INC.-2018-19388

PATIENT

DRUGS (2)
  1. EYLEA [Suspect]
     Active Substance: AFLIBERCEPT
     Dosage: UNK, EVERY 12 WEEKS
     Dates: start: 20180313
  2. EYLEA [Suspect]
     Active Substance: AFLIBERCEPT
     Indication: NEOVASCULAR AGE-RELATED MACULAR DEGENERATION
     Dosage: INTRAVITREAL INJECTION TO RIGHT EYE EVERY 10-12 WEEKS
     Route: 031
     Dates: start: 20160916

REACTIONS (1)
  - Posterior capsule opacification [Recovering/Resolving]

NARRATIVE: CASE EVENT DATE: 201802
